FAERS Safety Report 21257983 (Version 1)
Quarter: 2022Q3

REPORT INFORMATION
  Report Type: Spontaneous
  Country: US (occurrence: US)
  Receive Date: 20220826
  Receipt Date: 20220826
  Transmission Date: 20221026
  Serious: Yes (Other)
  Sender: FDA-Public Use
  Company Number: US-AMGEN-USASP2022145099

PATIENT
  Age: 49 Year
  Sex: Female
  Weight: 60.7 kg

DRUGS (5)
  1. ENBREL [Suspect]
     Active Substance: ETANERCEPT
     Indication: Rheumatoid arthritis
     Dosage: UNK (15 MG OR 30 MG, 1 IN 1 WEEK)
     Route: 058
     Dates: end: 2022
  2. XELJANZ XR [Concomitant]
     Active Substance: TOFACITINIB CITRATE
     Indication: Rheumatoid arthritis
     Dosage: 11 MILLIGRAM, QD
     Route: 065
     Dates: start: 2022
  3. HUMIRA [Concomitant]
     Active Substance: ADALIMUMAB
     Indication: Rheumatoid arthritis
     Dosage: 40 MILLIGRAM, 2 TIMES/WK
     Route: 058
     Dates: start: 2022, end: 2022
  4. PREDNISONE ACETATE [Concomitant]
     Active Substance: PREDNISONE ACETATE
     Dosage: 10 MILLIGRAM
     Route: 065
  5. TYLENOL [Concomitant]
     Active Substance: ACETAMINOPHEN
     Route: 065

REACTIONS (4)
  - Rheumatoid arthritis [Unknown]
  - Foot deformity [Unknown]
  - Therapeutic product effect decreased [Unknown]
  - Incorrect dose administered [Unknown]

NARRATIVE: CASE EVENT DATE: 20220101
